FAERS Safety Report 19466297 (Version 1)
Quarter: 2021Q2

REPORT INFORMATION
  Report Type: Spontaneous
  Country: CN (occurrence: CN)
  Receive Date: 20210627
  Receipt Date: 20210627
  Transmission Date: 20210717
  Serious: Yes (Other)
  Sender: FDA-Public Use
  Company Number: CN-ROCHE-2855476

PATIENT
  Age: 84 Year
  Sex: Male

DRUGS (8)
  1. AVASTIN [Suspect]
     Active Substance: BEVACIZUMAB
     Indication: FISTULA
  2. XELODA [Suspect]
     Active Substance: CAPECITABINE
     Indication: FISTULA
  3. AVASTIN [Suspect]
     Active Substance: BEVACIZUMAB
     Indication: ADENOCARCINOMA OF COLON
  4. AVASTIN [Suspect]
     Active Substance: BEVACIZUMAB
     Indication: K-RAS GENE MUTATION
     Dosage: 1?7TH AVASTIN+XELODA REGIMEN,ONCE PER 3 WEEKS
     Route: 041
     Dates: start: 20200522, end: 20201104
  5. XELODA [Suspect]
     Active Substance: CAPECITABINE
     Indication: K-RAS GENE MUTATION
     Dosage: DAY 1?14, 1?7TH AVASTIN+XELODA REGIMEN,ONCE PER 3 WEEKS
     Route: 048
     Dates: start: 20200522, end: 20201104
  6. XELODA [Suspect]
     Active Substance: CAPECITABINE
     Indication: ADENOCARCINOMA OF COLON
     Dosage: DAY 1?14, SINGLE?AGENT CHEMOTHERAPY,ONCE PER 3 WEEKS
     Route: 048
     Dates: start: 2021
  7. FLUCONAZOLE. [Concomitant]
     Active Substance: FLUCONAZOLE
     Indication: INFECTION
     Dosage: MEROPENEM + FLUCONAZOLE
     Dates: start: 20200509
  8. MEROPENEM. [Concomitant]
     Active Substance: MEROPENEM
     Indication: INFECTION
     Dosage: MEROPENEM + FLUCONAZOLE
     Dates: start: 20200509

REACTIONS (2)
  - Palmar-plantar erythrodysaesthesia syndrome [Unknown]
  - Abdominal wound dehiscence [Unknown]

NARRATIVE: CASE EVENT DATE: 202012
